FAERS Safety Report 13821211 (Version 2)
Quarter: 2017Q3

REPORT INFORMATION
  Report Type: Spontaneous
  Country: US (occurrence: US)
  Receive Date: 20170801
  Receipt Date: 20170809
  Transmission Date: 20171127
  Serious: Yes (Other)
  Sender: FDA-Public Use
  Company Number: US-PFIZER INC-2017326572

PATIENT
  Sex: Male

DRUGS (4)
  1. SULFASALAZINE. [Suspect]
     Active Substance: SULFASALAZINE
     Dosage: 500 MG, 2X/DAY
  2. FENTANYL. [Suspect]
     Active Substance: FENTANYL
     Dosage: UNK, (25MCG/HR 1 PATCH EVERY 72 HOURS)
  3. FUROSEMIDE. [Suspect]
     Active Substance: FUROSEMIDE
     Dosage: 40 MG, AS NEEDED
  4. APIXABAN [Suspect]
     Active Substance: APIXABAN
     Dosage: 5 MG, UNK

REACTIONS (22)
  - Deafness [Unknown]
  - Back pain [Unknown]
  - Dry mouth [Unknown]
  - Joint swelling [Unknown]
  - Dyspnoea [Unknown]
  - Fatigue [Unknown]
  - Arthralgia [Not Recovered/Not Resolved]
  - Musculoskeletal stiffness [Unknown]
  - Ocular hyperaemia [Unknown]
  - Dry eye [Unknown]
  - Hypertension [Unknown]
  - Synovitis [Unknown]
  - Foot deformity [Unknown]
  - Blood test abnormal [Unknown]
  - Nodal osteoarthritis [Unknown]
  - C-reactive protein increased [Unknown]
  - Muscular weakness [Unknown]
  - Oedema peripheral [Unknown]
  - Arthropathy [Not Recovered/Not Resolved]
  - Hypoaesthesia [Unknown]
  - Blood creatinine increased [Unknown]
  - Depression [Unknown]
